FAERS Safety Report 7448725-8 (Version None)
Quarter: 2011Q2

REPORT INFORMATION
  Report Type: 
  Country: None (occurrence: None)
  Receive Date: 20110429
  Receipt Date: 20100710
  Transmission Date: 20111010
  Serious: No
  Sender: FDA-Public Use
  Company Number: US-ASTRAZENECA-2010SE32451

PATIENT
  Age: 46 Year
  Sex: Male
  Weight: 77.6 kg

DRUGS (1)
  1. NEXIUM [Suspect]
     Indication: OESOPHAGEAL DISORDER
     Route: 048
     Dates: start: 20100701

REACTIONS (3)
  - COUGH [None]
  - DECREASED APPETITE [None]
  - FATIGUE [None]
